FAERS Safety Report 5226568-3 (Version None)
Quarter: 2007Q1

REPORT INFORMATION
  Report Type: 
  Country: None (occurrence: None)
  Receive Date: 20061201
  Receipt Date: 20060921
  Transmission Date: 20070707
  Serious: No
  Sender: FDA-Public Use
  Company Number: US200609005885

PATIENT
  Age: 45 Year
  Sex: Female

DRUGS (4)
  1. CYMBALTA [Suspect]
     Indication: MAJOR DEPRESSION
     Dosage: 60 MG, ORAL
     Route: 048
     Dates: start: 20060601
  2. SYNTHROID [Concomitant]
  3. WELLBUTRIN [Concomitant]
  4. PREVACIC(LANSOPRAZOLE) [Concomitant]

REACTIONS (9)
  - CRYING [None]
  - DIZZINESS [None]
  - DRUG INEFFECTIVE [None]
  - FEELING ABNORMAL [None]
  - HALLUCINATION [None]
  - MENOPAUSE [None]
  - NAUSEA [None]
  - PANIC ATTACK [None]
  - WEIGHT DECREASED [None]
